FAERS Safety Report 10420240 (Version 1)
Quarter: 2014Q3

REPORT INFORMATION
  Report Type: Report from Study
  Country: US (occurrence: None)
  Receive Date: 20140804
  Receipt Date: 20140804
  Transmission Date: 20150326
  Serious: Yes (Hospitalization)
  Sender: FDA-Public Use
  Company Number: 2013US008737

PATIENT
  Age: 52 Year
  Sex: Male
  Weight: 71.2 kg

DRUGS (8)
  1. ALBUTEROL SULFATE (SALBUTAMOL SULFATE) [Concomitant]
     Active Substance: ALBUTEROL SULFATE
  2. PREDNISONE. [Concomitant]
     Active Substance: PREDNISONE
  3. FLONASE [Concomitant]
     Active Substance: FLUTICASONE PROPIONATE
  4. ADVAIR DISKUS [Concomitant]
     Active Substance: FLUTICASONE PROPIONATE\SALMETEROL XINAFOATE
  5. SYMBICORT (BUDESONIDE, FORMOTEROL, FUMARATE) [Concomitant]
  6. GLASSIA [Suspect]
     Active Substance: .ALPHA.1-PROTEINASE INHIBITOR HUMAN
     Indication: ALPHA-1 ANTI-TRYPSIN DEFICIENCY
     Dosage: 4000MG +/- 10% WEEKLY, INTRAVENOUS
     Route: 042
  7. SINGULAIR (MONTELUKAST SODIUM) [Concomitant]
  8. SPIRIVA [Concomitant]
     Active Substance: TIOTROPIUM BROMIDE MONOHYDRATE

REACTIONS (4)
  - Respiratory distress [None]
  - Fall [None]
  - Circulatory collapse [None]
  - Asthma [None]

NARRATIVE: CASE EVENT DATE: 20130827
